FAERS Safety Report 10568368 (Version 1)
Quarter: 2014Q4

REPORT INFORMATION
  Report Type: Spontaneous
  Country: US (occurrence: US)
  Receive Date: 20141106
  Receipt Date: 20141106
  Transmission Date: 20150529
  Serious: No
  Sender: FDA-Public Use
  Company Number: US-BAUSCH-BL-2014-004066

PATIENT
  Age: 51 Year
  Sex: Female
  Weight: 71.28 kg

DRUGS (2)
  1. ZIRGAN [Suspect]
     Active Substance: GANCICLOVIR
     Indication: HERPES OPHTHALMIC
     Dosage: 1 DROP 5 TIMES DAILY FOR 1 WEEK
     Route: 047
     Dates: start: 20140719, end: 201407
  2. ZIRGAN [Suspect]
     Active Substance: GANCICLOVIR
     Dosage: 1 DROP DAILY IN LEFT EYE
     Route: 047
     Dates: start: 201407

REACTIONS (2)
  - Drug ineffective [Not Recovered/Not Resolved]
  - Product quality issue [Unknown]

NARRATIVE: CASE EVENT DATE: 20140719
